FAERS Safety Report 12036749 (Version 2)
Quarter: 2016Q1

REPORT INFORMATION
  Report Type: Spontaneous
  Country: FI (occurrence: FI)
  Receive Date: 20160207
  Receipt Date: 20160222
  Transmission Date: 20160526
  Serious: Yes (Hospitalization, Other)
  Sender: FDA-Public Use
  Company Number: FI-ROCHE-1703831

PATIENT
  Age: 71 Year
  Sex: Female

DRUGS (1)
  1. RITUXIMAB [Suspect]
     Active Substance: RITUXIMAB
     Indication: RHEUMATOID ARTHRITIS
     Route: 042
     Dates: start: 20140923

REACTIONS (11)
  - Arthralgia [Unknown]
  - Pain in extremity [Unknown]
  - Pneumonia [Unknown]
  - Sepsis [Unknown]
  - Spinal operation [Unknown]
  - Wound infection staphylococcal [Unknown]
  - Neutrophil count decreased [Unknown]
  - Staphylococcus test positive [Unknown]
  - Intervertebral discitis [Unknown]
  - Wound infection fungal [Unknown]
  - Peripheral swelling [Unknown]

NARRATIVE: CASE EVENT DATE: 201501
